FAERS Safety Report 4918251-6 (Version None)
Quarter: 2006Q1

REPORT INFORMATION
  Report Type: 
  Country: None (occurrence: None)
  Receive Date: 20060214
  Receipt Date: 20060203
  Transmission Date: 20060701
  Serious: Yes (Hospitalization, Other)
  Sender: FDA-Public Use
  Company Number: HQWYE683306FEB06

PATIENT
  Age: 15 Year
  Sex: Female

DRUGS (4)
  1. RHINADVIL (IBUPROFEN/PSEUDOEPHEDRINE HYDROCHLORIDE, TABLET) [Suspect]
     Indication: INFLUENZA
     Dosage: 3 TABLETS A DAY SEVEN DAYS BEFORE HOSPITAL ADMISSION
     Route: 048
  2. RHINADVIL (IBUPROFEN/PSEUDOEPHEDRINE HYDROCHLORIDE, TABLET) [Suspect]
     Indication: RHINORRHOEA
     Dosage: 3 TABLETS A DAY SEVEN DAYS BEFORE HOSPITAL ADMISSION
     Route: 048
  3. ACETAMINOPHEN [Suspect]
     Dosage: 1500 MG (3 PILLS) A DAY SEVEN DAYS BEFORE HOSPITAL ADMISSION
  4. PHOLCODINE TAB [Suspect]
     Dosage: 9 MG (3 TEASPOONS) A DAY SEVEN DAYS BEFORE HER ADMISSION
     Route: 048

REACTIONS (5)
  - BLOOD FIBRINOGEN DECREASED [None]
  - COLITIS ISCHAEMIC [None]
  - INFLAMMATION [None]
  - LEUKOCYTOSIS [None]
  - PYREXIA [None]
